FAERS Safety Report 10387266 (Version 1)
Quarter: 2014Q3

REPORT INFORMATION
  Report Type: Spontaneous
  Country: US (occurrence: US)
  Receive Date: 20140815
  Receipt Date: 20140815
  Transmission Date: 20150326
  Serious: No
  Sender: FDA-Public Use
  Company Number: US-BAYER-2014-122389

PATIENT
  Age: 85 Year
  Sex: Female
  Weight: 51 kg

DRUGS (3)
  1. VITAMIN D3 [Concomitant]
     Active Substance: CHOLECALCIFEROL
  2. ALEVE [Suspect]
     Active Substance: NAPROXEN SODIUM
     Indication: BACK PAIN
     Dosage: 1 DF, ONCE
     Route: 048
     Dates: start: 20140813, end: 20140813
  3. OCUVITE [Concomitant]
     Active Substance: VITAMINS

REACTIONS (1)
  - Expired product administered [None]

NARRATIVE: CASE EVENT DATE: 20140813
